FAERS Safety Report 10558037 (Version 3)
Quarter: 2014Q4

REPORT INFORMATION
  Report Type: Report from Study
  Country: US (occurrence: US)
  Receive Date: 20141031
  Receipt Date: 20141114
  Transmission Date: 20150529
  Serious: Yes (Hospitalization)
  Sender: FDA-Public Use
  Company Number: US-BRISTOL-MYERS SQUIBB COMPANY-21522081

PATIENT
  Age: 74 Year
  Sex: Female
  Weight: 83.1 kg

DRUGS (7)
  1. SYNTHROID [Concomitant]
     Active Substance: LEVOTHYROXINE SODIUM
  2. DENDRITIC CELLS CYTOKINE INDUCED KILLER CELLS [Suspect]
     Active Substance: INVESTIGATIONAL PRODUCT
     Indication: MALIGNANT MELANOMA
     Route: 058
     Dates: start: 20140828, end: 20140925
  3. LOVENOX [Concomitant]
     Active Substance: ENOXAPARIN SODIUM
  4. DASATINIB [Suspect]
     Active Substance: DASATINIB
     Indication: METASTATIC MALIGNANT MELANOMA
     Dosage: LAST DOSE 25SEP14.
     Route: 048
     Dates: start: 20140828, end: 20140925
  5. CLONAZEPAM. [Concomitant]
     Active Substance: CLONAZEPAM
  6. DIFLUCAN [Concomitant]
     Active Substance: FLUCONAZOLE
  7. BUPROPION [Concomitant]
     Active Substance: BUPROPION

REACTIONS (1)
  - Adrenal insufficiency [Unknown]

NARRATIVE: CASE EVENT DATE: 20141017
